FAERS Safety Report 22744083 (Version 4)
Quarter: 2023Q4

REPORT INFORMATION
  Report Type: Report from Study
  Country: GB (occurrence: None)
  Receive Date: 20230724
  Receipt Date: 20231013
  Transmission Date: 20240109
  Serious: Yes (Death, Hospitalization)
  Sender: FDA-Public Use
  Company Number: GB-ROCHE-3276892

PATIENT
  Age: 71 Year
  Sex: Male
  Weight: 73.05 kg

DRUGS (11)
  1. MOSUNETUZUMAB [Suspect]
     Active Substance: MOSUNETUZUMAB
     Indication: Follicular lymphoma
     Route: 058
     Dates: start: 20211109
  2. LENALIDOMIDE [Suspect]
     Active Substance: LENALIDOMIDE
     Indication: Follicular lymphoma
     Dosage: AS PER PROTOCOL
     Route: 048
     Dates: start: 20211130
  3. ATORVASTATIN [Concomitant]
     Active Substance: ATORVASTATIN
     Route: 048
     Dates: start: 2006
  4. OMEPRAZOLE [Concomitant]
     Active Substance: OMEPRAZOLE
     Indication: Dyspepsia
     Route: 048
     Dates: start: 2020
  5. ACYCLOVIR [Concomitant]
     Active Substance: ACYCLOVIR
     Route: 048
     Dates: start: 20211109
  6. COTRIMOXAZOLE [Concomitant]
     Active Substance: SULFAMETHOXAZOLE\TRIMETHOPRIM
     Route: 048
     Dates: start: 20211109
  7. FILGRASTIM [Concomitant]
     Active Substance: FILGRASTIM
     Dosage: MEDICATION DOSE: 48 OTHER
     Route: 058
     Dates: start: 20220223
  8. OXYCODONE HYDROCHLORIDE [Concomitant]
     Active Substance: OXYCODONE HYDROCHLORIDE
     Indication: Back pain
     Route: 048
     Dates: start: 20220817
  9. ASPIRIN [Concomitant]
     Active Substance: ASPIRIN
     Route: 048
     Dates: start: 20221013
  10. LEVOFLOXACIN [Concomitant]
     Active Substance: LEVOFLOXACIN
     Route: 058
     Dates: start: 20230122, end: 20230124
  11. CLARITHROMYCIN [Concomitant]
     Active Substance: CLARITHROMYCIN
     Route: 042
     Dates: start: 20230122, end: 20230124

REACTIONS (1)
  - Pneumonia [Fatal]

NARRATIVE: CASE EVENT DATE: 20221226
